FAERS Safety Report 9932628 (Version 1)
Quarter: 2014Q1

REPORT INFORMATION
  Report Type: Spontaneous
  Country: US (occurrence: US)
  Receive Date: 20140228
  Receipt Date: 20140228
  Transmission Date: 20141002
  Serious: No
  Sender: FDA-Public Use
  Company Number: US-GLAXOSMITHKLINE-A1016531A

PATIENT
  Age: 12 Year
  Sex: Female
  Weight: 38.6 kg

DRUGS (6)
  1. IMITREX [Suspect]
     Indication: MIGRAINE
     Route: 042
     Dates: start: 201212
  2. MAXALT [Concomitant]
  3. REGLAN [Concomitant]
  4. ZOFRAN [Concomitant]
  5. TORADOL [Concomitant]
  6. BENADRYL [Concomitant]

REACTIONS (3)
  - Arthralgia [Recovering/Resolving]
  - Gait disturbance [Unknown]
  - Pain in extremity [Unknown]
